FAERS Safety Report 17258999 (Version 2)
Quarter: 2020Q2

REPORT INFORMATION
  Report Type: Spontaneous
  Country: US (occurrence: US)
  Receive Date: 20200110
  Receipt Date: 20200403
  Transmission Date: 20200713
  Serious: Yes (Other)
  Sender: FDA-Public Use
  Company Number: US-PFIZER INC-2020011205

PATIENT
  Age: 67 Year
  Sex: Male

DRUGS (80)
  1. METHYLPREDNISOLONE. [Concomitant]
     Active Substance: METHYLPREDNISOLONE
     Indication: COLITIS ULCERATIVE
  2. INDOMETACIN [Concomitant]
     Active Substance: INDOMETHACIN
     Indication: TENDONITIS
  3. FLUTICASONE PROPIONATE SPRAY [Concomitant]
     Indication: HYPERSENSITIVITY
  4. DICLOFENAC POTASSIUM. [Concomitant]
     Active Substance: DICLOFENAC POTASSIUM
     Indication: JOINT STIFFNESS
  5. DICLOFENAC POTASSIUM. [Concomitant]
     Active Substance: DICLOFENAC POTASSIUM
     Indication: ARTHRITIS
  6. LEXAPRO [Concomitant]
     Active Substance: ESCITALOPRAM OXALATE
     Indication: DEPRESSION
     Dosage: UNK
     Dates: start: 2013, end: 2014
  7. CIALIS [Concomitant]
     Active Substance: TADALAFIL
     Indication: PROSTATOMEGALY
     Dosage: UNK
     Dates: start: 2013
  8. CIALIS [Concomitant]
     Active Substance: TADALAFIL
     Indication: ERECTILE DYSFUNCTION
  9. KENALOG AEROSOL SPRAY [Concomitant]
     Indication: MULTIPLE ALLERGIES
  10. NYSTATIN-TRIAMCINOLONE [Concomitant]
     Indication: FUNGAL INFECTION
     Dosage: UNK
     Dates: start: 2013
  11. DIAZEPAM. [Concomitant]
     Active Substance: DIAZEPAM
     Indication: ANXIETY DISORDER
     Dosage: UNK
     Dates: start: 2014
  12. NEXIUM 24HR [Suspect]
     Active Substance: ESOMEPRAZOLE MAGNESIUM
     Dosage: 20 MG, AS NEEDED (OFF AND ON)
     Dates: start: 2014, end: 2017
  13. PRILOSEC [Suspect]
     Active Substance: OMEPRAZOLE MAGNESIUM
     Dosage: 20 MG, 1X/DAY
     Dates: start: 1990, end: 2002
  14. ESOMEPRAZOLE. [Suspect]
     Active Substance: ESOMEPRAZOLE MAGNESIUM
     Indication: GASTROOESOPHAGEAL REFLUX DISEASE
     Dosage: 40 MG, 1X/DAY
     Dates: start: 2015, end: 2016
  15. CYCLOBENZAPRINE. [Concomitant]
     Active Substance: CYCLOBENZAPRINE
     Dosage: UNK
     Dates: start: 2014, end: 2017
  16. TAMSULOSIN HCL [Concomitant]
     Active Substance: TAMSULOSIN HYDROCHLORIDE
     Indication: PROSTATOMEGALY
  17. INDOMETACIN [Concomitant]
     Active Substance: INDOMETHACIN
     Indication: SWELLING
  18. INDOMETACIN [Concomitant]
     Active Substance: INDOMETHACIN
     Indication: BURSITIS
  19. LEXAPRO [Concomitant]
     Active Substance: ESCITALOPRAM OXALATE
     Indication: ANXIETY
  20. AVELOX [Concomitant]
     Active Substance: MOXIFLOXACIN HYDROCHLORIDE
     Indication: BRONCHITIS CHRONIC
  21. KENALOG AEROSOL SPRAY [Concomitant]
     Indication: ECZEMA
     Dosage: UNK
     Dates: start: 2013
  22. KENALOG AEROSOL SPRAY [Concomitant]
     Indication: RASH
  23. VALACYCLOVIR HCL [Concomitant]
     Active Substance: VALACYCLOVIR HYDROCHLORIDE
     Indication: HERPES ZOSTER
  24. VALACYCLOVIR HCL [Concomitant]
     Active Substance: VALACYCLOVIR HYDROCHLORIDE
     Indication: GENITAL HERPES
  25. FLUTICASONE PROPIONATE SPRAY [Concomitant]
     Indication: RHINORRHOEA
     Dosage: UNK
     Dates: start: 2013
  26. DIAZEPAM. [Concomitant]
     Active Substance: DIAZEPAM
     Indication: MUSCLE SPASMS
  27. DUEXIS [Concomitant]
     Active Substance: FAMOTIDINE\IBUPROFEN
     Dosage: UNK
  28. NEXIUM [Suspect]
     Active Substance: ESOMEPRAZOLE MAGNESIUM
     Indication: GASTROOESOPHAGEAL REFLUX DISEASE
     Dosage: UNK
     Dates: start: 1990, end: 2019
  29. PROTONIX [Suspect]
     Active Substance: PANTOPRAZOLE SODIUM
     Indication: GASTROOESOPHAGEAL REFLUX DISEASE
     Dosage: UNK
     Dates: start: 1990, end: 2019
  30. TRAMADOL HCL [Concomitant]
     Active Substance: TRAMADOL HYDROCHLORIDE
     Indication: PAIN
     Dosage: UNK
     Dates: start: 2015
  31. TAMSULOSIN HCL [Concomitant]
     Active Substance: TAMSULOSIN HYDROCHLORIDE
     Indication: DYSURIA
     Dosage: UNK
     Dates: start: 2015, end: 2017
  32. CLARITHROMYCIN. [Concomitant]
     Active Substance: CLARITHROMYCIN
     Indication: GASTRIC ULCER
     Dosage: UNK
     Dates: start: 2015
  33. INDOMETACIN [Concomitant]
     Active Substance: INDOMETHACIN
     Indication: PAIN
     Dosage: UNK
     Dates: start: 2015
  34. FLUTICASONE PROPIONATE SPRAY [Concomitant]
     Indication: PRURITUS
  35. KENALOG AEROSOL SPRAY [Concomitant]
     Indication: DERMATITIS
  36. VALACYCLOVIR HCL [Concomitant]
     Active Substance: VALACYCLOVIR HYDROCHLORIDE
     Indication: ORAL HERPES
     Dosage: UNK
     Dates: start: 2014
  37. PRILOSEC [Suspect]
     Active Substance: OMEPRAZOLE MAGNESIUM
     Indication: GASTROOESOPHAGEAL REFLUX DISEASE
     Dosage: UNK
     Dates: start: 1990, end: 2019
  38. PRILOSEC OTC [Suspect]
     Active Substance: OMEPRAZOLE MAGNESIUM
     Indication: GASTROOESOPHAGEAL REFLUX DISEASE
     Dosage: UNK
     Dates: start: 1990, end: 2019
  39. RANITIDINE. [Suspect]
     Active Substance: RANITIDINE
     Dosage: UNK
  40. ESCITALOPRAM [Concomitant]
     Active Substance: ESCITALOPRAM OXALATE
     Indication: ANXIETY
     Dosage: UNK
     Dates: start: 2016
  41. METHYLPREDNISOLONE. [Concomitant]
     Active Substance: METHYLPREDNISOLONE
     Indication: ARTHRITIS
     Dosage: UNK
     Dates: start: 2014, end: 2015
  42. METHYLPREDNISOLONE. [Concomitant]
     Active Substance: METHYLPREDNISOLONE
     Indication: ENDOCRINE DISORDER
  43. METHYLPREDNISOLONE. [Concomitant]
     Active Substance: METHYLPREDNISOLONE
     Indication: MULTIPLE ALLERGIES
  44. INDOMETACIN [Concomitant]
     Active Substance: INDOMETHACIN
     Indication: JOINT STIFFNESS
  45. DICLOFENAC POTASSIUM. [Concomitant]
     Active Substance: DICLOFENAC POTASSIUM
     Indication: BACK PAIN
  46. DICLOFENAC POTASSIUM. [Concomitant]
     Active Substance: DICLOFENAC POTASSIUM
     Indication: SWELLING
  47. KENALOG AEROSOL SPRAY [Concomitant]
     Indication: ERYTHEMA
  48. VALACYCLOVIR HCL [Concomitant]
     Active Substance: VALACYCLOVIR HYDROCHLORIDE
     Indication: HERPES VIRUS INFECTION
  49. DIAZEPAM. [Concomitant]
     Active Substance: DIAZEPAM
     Indication: SEIZURE
  50. NEXIUM [Suspect]
     Active Substance: ESOMEPRAZOLE MAGNESIUM
     Dosage: 40 MG, 1X/DAY
     Dates: start: 2002, end: 2015
  51. NEXIUM 24HR [Suspect]
     Active Substance: ESOMEPRAZOLE MAGNESIUM
     Indication: GASTROOESOPHAGEAL REFLUX DISEASE
     Dosage: UNK
     Dates: end: 2019
  52. PRILOSEC OTC [Suspect]
     Active Substance: OMEPRAZOLE MAGNESIUM
     Dosage: 20 MG, AS NEEDED (OFF AND ON)
     Dates: start: 2003, end: 2017
  53. SULFAMETHOXAZOLE TMP [Concomitant]
     Active Substance: SULFAMETHOXAZOLE\TRIMETHOPRIM
     Indication: EAR INFECTION
     Dosage: UNK
     Dates: start: 2015
  54. FLUTICASONE PROPIONATE SPRAY [Concomitant]
     Indication: LACRIMATION INCREASED
  55. DICLOFENAC POTASSIUM. [Concomitant]
     Active Substance: DICLOFENAC POTASSIUM
     Indication: TOOTHACHE
  56. CIALIS [Concomitant]
     Active Substance: TADALAFIL
     Indication: ERECTILE DYSFUNCTION
     Dosage: UNK
     Dates: start: 2016
  57. NYSTATIN-TRIAMCINOLONE [Concomitant]
     Dosage: UNK
     Dates: start: 2015
  58. XOLEGEL 2% [Concomitant]
     Indication: FUNGAL INFECTION
  59. PROTONIX [Suspect]
     Active Substance: PANTOPRAZOLE SODIUM
     Dosage: 40 MG, 1X/DAY
     Dates: start: 2013, end: 2014
  60. CLARITHROMYCIN. [Concomitant]
     Active Substance: CLARITHROMYCIN
     Indication: BACTERIAL INFECTION
     Dosage: UNK
     Dates: start: 2007
  61. ESCITALOPRAM [Concomitant]
     Active Substance: ESCITALOPRAM OXALATE
     Indication: MAJOR DEPRESSION
  62. INDOMETACIN [Concomitant]
     Active Substance: INDOMETHACIN
     Indication: GOUT
  63. SULFAMETHOXAZOLE TMP [Concomitant]
     Active Substance: SULFAMETHOXAZOLE\TRIMETHOPRIM
     Indication: URINARY TRACT INFECTION
  64. FLUTICASONE PROPIONATE SPRAY [Concomitant]
     Indication: SNEEZING
  65. DICLOFENAC POTASSIUM. [Concomitant]
     Active Substance: DICLOFENAC POTASSIUM
     Indication: MYALGIA
     Dosage: UNK
     Dates: start: 2014
  66. AVELOX [Concomitant]
     Active Substance: MOXIFLOXACIN HYDROCHLORIDE
     Indication: BACTERIAL INFECTION
     Dosage: UNK
     Dates: start: 2013
  67. AVELOX [Concomitant]
     Active Substance: MOXIFLOXACIN HYDROCHLORIDE
     Indication: PNEUMONIA
  68. HYDROCORTISONE. [Concomitant]
     Active Substance: HYDROCORTISONE
     Indication: ECZEMA
     Dosage: UNK
     Dates: start: 2013
  69. DIAZEPAM. [Concomitant]
     Active Substance: DIAZEPAM
     Indication: ALCOHOL WITHDRAWAL SYNDROME
  70. PANTOPRAZOLE [Suspect]
     Active Substance: PANTOPRAZOLE
     Indication: GASTROOESOPHAGEAL REFLUX DISEASE
     Dosage: 40 MG, 1X/DAY
     Dates: start: 2013, end: 2015
  71. AFLURIA SYRINGE [Concomitant]
     Indication: PROPHYLAXIS
     Dosage: UNK
     Dates: start: 2012, end: 2015
  72. FLUVIRIN NOS [Concomitant]
     Active Substance: INFLUENZA VIRUS VACCINE
     Indication: INFLUENZA
     Dosage: UNK
     Dates: start: 2013
  73. ESCITALOPRAM [Concomitant]
     Active Substance: ESCITALOPRAM OXALATE
     Indication: NERVOUSNESS
     Dosage: UNK
     Dates: start: 2013, end: 2014
  74. METHYLPREDNISOLONE. [Concomitant]
     Active Substance: METHYLPREDNISOLONE
     Indication: PSORIASIS
  75. SULFAMETHOXAZOLE TMP [Concomitant]
     Active Substance: SULFAMETHOXAZOLE\TRIMETHOPRIM
     Indication: BRONCHITIS
  76. FLUTICASONE PROPIONATE SPRAY [Concomitant]
     Indication: NASAL CONGESTION
     Dosage: UNK
     Dates: start: 2015, end: 2016
  77. FLUTICASONE PROPIONATE SPRAY [Concomitant]
     Indication: EYE SYMPTOM
  78. KENALOG AEROSOL SPRAY [Concomitant]
     Indication: PRURITUS
  79. XOLEGEL 2% [Concomitant]
     Indication: SEBORRHOEIC DERMATITIS
     Dosage: UNK
     Dates: start: 2013
  80. ZANTAC 150 (RANITIDINE HYDROCHLORIDE) [Concomitant]
     Active Substance: RANITIDINE HYDROCHLORIDE
     Dosage: UNK

REACTIONS (1)
  - Chronic kidney disease [Not Recovered/Not Resolved]

NARRATIVE: CASE EVENT DATE: 201510
